FAERS Safety Report 8619824-X (Version None)
Quarter: 2012Q3

REPORT INFORMATION
  Report Type: 
  Country: None (occurrence: None)
  Receive Date: 20120816
  Receipt Date: 20120816
  Transmission Date: 20120928
  Serious: No
  Sender: FDA-Public Use
  Company Number: None

PATIENT
  Age: 27 Year
  Sex: Female
  Weight: 108.8633 kg

DRUGS (2)
  1. CALDOLOR [Suspect]
     Indication: PROCEDURAL PAIN
     Dosage: 800MG ONCE IV
     Route: 042
     Dates: start: 20120612, end: 20120612
  2. CALDOLOR [Suspect]
     Indication: ABDOMINAL PAIN
     Dosage: 800MG ONCE IV
     Route: 042
     Dates: start: 20120612, end: 20120612

REACTIONS (3)
  - TENDERNESS [None]
  - OEDEMA PERIPHERAL [None]
  - POST PROCEDURAL COMPLICATION [None]
